FAERS Safety Report 4830602-X (Version None)
Quarter: 2005Q4

REPORT INFORMATION
  Report Type: 
  Country: None (occurrence: None)
  Receive Date: 20051115
  Receipt Date: 20051104
  Transmission Date: 20060501
  Serious: Yes (Disabling)
  Sender: FDA-Public Use
  Company Number: 2005152192

PATIENT
  Age: 36 Year
  Sex: Male

DRUGS (2)
  1. XANAX [Suspect]
     Indication: ILL-DEFINED DISORDER
     Dosage: 0.5 MG (0.25 MG), ORAL
     Route: 048
     Dates: start: 19980615
  2. PAROXETINE HYDROCHLORIDE [Suspect]
     Indication: ILL-DEFINED DISORDER
     Dosage: 30  MG, ORAL
     Route: 048
     Dates: start: 20040615

REACTIONS (14)
  - ABNORMAL BEHAVIOUR [None]
  - AGGRESSION [None]
  - AGITATION [None]
  - AMNESIA [None]
  - BALANCE DISORDER [None]
  - DEPRESSION [None]
  - FATIGUE [None]
  - HOT FLUSH [None]
  - HYPERHIDROSIS [None]
  - MEMORY IMPAIRMENT [None]
  - PANIC DISORDER [None]
  - PERSONALITY DISORDER [None]
  - SEXUAL DYSFUNCTION [None]
  - SPEECH DISORDER [None]
